FAERS Safety Report 11575284 (Version 3)
Quarter: 2015Q4

REPORT INFORMATION
  Report Type: Spontaneous
  Country: GB (occurrence: GB)
  Receive Date: 20150930
  Receipt Date: 20151104
  Transmission Date: 20160304
  Serious: Yes (Hospitalization, Other)
  Sender: FDA-Public Use
  Company Number: GB-IPSEN BIOPHARMACEUTICALS, INC.-2015-7605

PATIENT
  Age: 45 Year
  Sex: Male

DRUGS (2)
  1. DYSPORT [Suspect]
     Active Substance: ABOBOTULINUMTOXINA
     Indication: PRODUCT USE ISSUE
  2. DYSPORT [Suspect]
     Active Substance: ABOBOTULINUMTOXINA
     Indication: HYPERTONIC BLADDER
     Route: 043
     Dates: start: 20081211, end: 20081211

REACTIONS (6)
  - Cystitis interstitial [Unknown]
  - Drug ineffective for unapproved indication [Unknown]
  - Product preparation error [Unknown]
  - Urinary tract infection [Unknown]
  - Adverse event [Not Recovered/Not Resolved]
  - Neurogenic bladder [Unknown]

NARRATIVE: CASE EVENT DATE: 20081211
